FAERS Safety Report 25251258 (Version 2)
Quarter: 2025Q2

REPORT INFORMATION
  Report Type: Spontaneous
  Country: US (occurrence: US)
  Receive Date: 20250429
  Receipt Date: 20250429
  Transmission Date: 20250717
  Serious: Yes (Hospitalization, Other)
  Sender: GILEAD
  Company Number: US-GILEAD-2025-0711470

PATIENT
  Age: 66 Year
  Sex: Male

DRUGS (3)
  1. REMDESIVIR [Suspect]
     Active Substance: REMDESIVIR
     Indication: COVID-19
     Route: 065
     Dates: start: 20211214
  2. METFORMIN [Concomitant]
     Active Substance: METFORMIN HYDROCHLORIDE
     Indication: Type 2 diabetes mellitus
     Dates: start: 20080502
  3. CRESTOR [Concomitant]
     Active Substance: ROSUVASTATIN CALCIUM
     Dates: start: 20080502

REACTIONS (9)
  - Ischaemic stroke [Not Recovered/Not Resolved]
  - Blindness [Not Recovered/Not Resolved]
  - Extraskeletal ossification [Not Recovered/Not Resolved]
  - Hemiplegia [Not Recovered/Not Resolved]
  - Acute respiratory distress syndrome [Unknown]
  - COVID-19 pneumonia [Unknown]
  - Coma [Recovered/Resolved]
  - Pneumothorax [Unknown]
  - Arthralgia [Unknown]

NARRATIVE: CASE EVENT DATE: 20211221
